FAERS Safety Report 9580887 (Version 1)
Quarter: 2013Q4

REPORT INFORMATION
  Report Type: Spontaneous
  Country: IT (occurrence: IT)
  Receive Date: 20131002
  Receipt Date: 20131002
  Transmission Date: 20140711
  Serious: Yes (Other)
  Sender: FDA-Public Use
  Company Number: IT-FRI-1000049308

PATIENT
  Age: 44 Year
  Sex: Female

DRUGS (1)
  1. FOSFOMYCIN [Suspect]
     Indication: URINARY TRACT INFECTION
     Dosage: 1 DF
     Route: 048
     Dates: start: 201307, end: 201307

REACTIONS (3)
  - Quadriparesis [Recovered/Resolved]
  - Nausea [Recovered/Resolved]
  - Vomiting [Recovered/Resolved]
